FAERS Safety Report 20873084 (Version 1)
Quarter: 2022Q2

REPORT INFORMATION
  Report Type: Spontaneous
  Country: US (occurrence: None)
  Receive Date: 20220524
  Receipt Date: 20220524
  Transmission Date: 20220720
  Serious: Yes (Hospitalization)
  Sender: FDA-Public Use
  Company Number: None

PATIENT
  Sex: Female

DRUGS (16)
  1. AMBRISENTAN [Suspect]
     Active Substance: AMBRISENTAN
     Indication: Multiple sclerosis
     Dosage: FREQUENCY : AS DIRECTED;?
     Route: 048
     Dates: start: 20200131
  2. AMBRISENTAN [Concomitant]
     Active Substance: AMBRISENTAN
  3. AUBAGIO [Concomitant]
     Active Substance: TERIFLUNOMIDE
  4. BUMETANIDE [Concomitant]
     Active Substance: BUMETANIDE
  5. CITALOPRAM [Concomitant]
     Active Substance: CITALOPRAM HYDROBROMIDE
  6. ATROPINE SULFATE\DIPHENOXYLATE [Concomitant]
     Active Substance: ATROPINE SULFATE\DIPHENOXYLATE
  7. FAMOTIDINE [Concomitant]
     Active Substance: FAMOTIDINE
  8. GABAPENTIN [Concomitant]
     Active Substance: GABAPENTIN
  9. IMITREX [Concomitant]
     Active Substance: SUMATRIPTAN SUCCINATE
  10. METOLAZONE [Concomitant]
     Active Substance: METOLAZONE
  11. POTASSIUM CHLORIDE [Concomitant]
     Active Substance: POTASSIUM CHLORIDE
  12. ROPINIROLE [Concomitant]
     Active Substance: ROPINIROLE
  13. SPIRONOLACTONE [Concomitant]
     Active Substance: SPIRONOLACTONE
  14. TADALAFIL [Concomitant]
     Active Substance: TADALAFIL
  15. TOPAMAX [Concomitant]
     Active Substance: TOPIRAMATE
  16. TREPROSTINIL [Concomitant]
     Active Substance: TREPROSTINIL

REACTIONS (1)
  - Hospitalisation [None]
